FAERS Safety Report 10223354 (Version 1)
Quarter: 2014Q2

REPORT INFORMATION
  Report Type: Spontaneous
  Country: US (occurrence: US)
  Receive Date: 20140609
  Receipt Date: 20140609
  Transmission Date: 20141212
  Serious: No
  Sender: FDA-Public Use
  Company Number: US-DRREDDYS-USA/USA/13/0029931

PATIENT
  Sex: Female
  Weight: 84.3 kg

DRUGS (1)
  1. FEXOFENADINE HCL  OTC [Suspect]
     Indication: HYPERSENSITIVITY
     Dosage: ONE PER DAY WHEN NEEDED
     Route: 048
     Dates: start: 20130101, end: 20130529

REACTIONS (5)
  - Dizziness [Unknown]
  - Dry eye [Unknown]
  - Eye pruritus [Unknown]
  - Drug ineffective [Unknown]
  - Product quality issue [Unknown]
